FAERS Safety Report 7585487-8 (Version None)
Quarter: 2011Q2

REPORT INFORMATION
  Report Type: 
  Country: None (occurrence: None)
  Receive Date: 20110628
  Receipt Date: 20110628
  Transmission Date: 20111010
  Serious: Yes (Life-Threatening, Hospitalization, Disabling)
  Sender: FDA-Public Use
  Company Number: None

PATIENT
  Age: 44 Year
  Sex: Female
  Weight: 61.2356 kg

DRUGS (1)
  1. NOR-QD [Suspect]
     Indication: CONTRACEPTION
     Dosage: 0.35 MG QD ORAL
     Route: 048
     Dates: start: 20080501, end: 20110411

REACTIONS (2)
  - CORONARY ARTERY DISSECTION [None]
  - EJECTION FRACTION DECREASED [None]
